FAERS Safety Report 17631197 (Version 2)
Quarter: 2021Q3

REPORT INFORMATION
  Report Type: Report from Study
  Country: BR (occurrence: BR)
  Receive Date: 20200406
  Receipt Date: 20210802
  Transmission Date: 20211014
  Serious: Yes (Other)
  Sender: FDA-Public Use
  Company Number: BR-EMD SERONO-9050134

PATIENT
  Age: 60 Year
  Sex: Female

DRUGS (4)
  1. FORASEQ [Concomitant]
     Active Substance: BUDESONIDE\FORMOTEROL FUMARATE
     Indication: ASTHMA
  2. REBIF [Suspect]
     Active Substance: INTERFERON BETA-1A
     Indication: MULTIPLE SCLEROSIS
     Dosage: THERAPY START DATE 03?MAY?2002 TO END DATE 02?JUN?2010
     Route: 058
  3. REBIF [Suspect]
     Active Substance: INTERFERON BETA-1A
     Dosage: THERAPY START DATE 02?JUN?2010 TO 15?AUG?2019
     Route: 058
  4. BIO?MANGUINHOS BETAINTERFERONA 1A 44 MCG [Suspect]
     Active Substance: INTERFERON BETA-1A
     Indication: MULTIPLE SCLEROSIS
     Dosage: THERAPY START DATE 17?AUG?2019
     Route: 058

REACTIONS (26)
  - Feeling abnormal [Unknown]
  - Injection site haemorrhage [Unknown]
  - Emphysema [Unknown]
  - Wrong technique in product usage process [Unknown]
  - Injection site pain [Recovered/Resolved]
  - Pneumonitis [Unknown]
  - Drug interaction [Recovering/Resolving]
  - Fatigue [Unknown]
  - Headache [Unknown]
  - Gait disturbance [Recovering/Resolving]
  - Viral infection [Recovering/Resolving]
  - Abdominal pain upper [Recovering/Resolving]
  - Malaise [Unknown]
  - Pneumonia [Recovering/Resolving]
  - Injection site haematoma [Not Recovered/Not Resolved]
  - Sensory disturbance [Unknown]
  - Balance disorder [Unknown]
  - Musculoskeletal stiffness [Unknown]
  - Pain in extremity [Unknown]
  - Injection site injury [Unknown]
  - Pain [Unknown]
  - Muscular weakness [Not Recovered/Not Resolved]
  - Poor quality sleep [Unknown]
  - Discouragement [Unknown]
  - Injection site bruising [Recovering/Resolving]
  - Inappropriate schedule of product administration [Unknown]

NARRATIVE: CASE EVENT DATE: 201006
